FAERS Safety Report 9729001 (Version 2)
Quarter: 2014Q1

REPORT INFORMATION
  Report Type: Spontaneous
  Country: US (occurrence: US)
  Receive Date: 20131204
  Receipt Date: 20140107
  Transmission Date: 20141002
  Serious: Yes (Other)
  Sender: FDA-Public Use
  Company Number: US-PFIZER INC-2013346078

PATIENT
  Age: 53 Year
  Sex: Female
  Weight: 62.59 kg

DRUGS (4)
  1. LYRICA [Suspect]
     Indication: FIBROMYALGIA
     Dosage: 150 MG, 2X/DAY
  2. TYLENOL [Concomitant]
     Indication: OSTEOARTHRITIS
     Dosage: UNK
  3. TYLENOL [Concomitant]
     Indication: SPINAL OSTEOARTHRITIS
  4. HYDROMORPHONE [Concomitant]
     Indication: PAIN
     Dosage: UNK

REACTIONS (7)
  - Dislocation of vertebra [Recovered/Resolved]
  - Intervertebral disc degeneration [Recovered/Resolved]
  - Spinal disorder [Recovered/Resolved]
  - Back pain [Recovered/Resolved]
  - Arthralgia [Recovered/Resolved]
  - Pain in extremity [Recovered/Resolved]
  - Drug ineffective [Unknown]
